FAERS Safety Report 8308788-4 (Version None)
Quarter: 2012Q2

REPORT INFORMATION
  Report Type: 
  Country: None (occurrence: None)
  Receive Date: 20120424
  Receipt Date: 20120416
  Transmission Date: 20120825
  Serious: Yes (Other)
  Sender: FDA-Public Use
  Company Number: US-ABBOTT-12P-163-0926309-00

PATIENT
  Sex: Male
  Weight: 96.248 kg

DRUGS (16)
  1. HYDROCHLOROTHIAZIDE [Concomitant]
     Indication: PRODUCT USED FOR UNKNOWN INDICATION
  2. TRIAMCINOLONE [Concomitant]
     Indication: PRODUCT USED FOR UNKNOWN INDICATION
  3. AN ALLERGY PILL [Concomitant]
     Indication: HYPERSENSITIVITY
  4. ASPIRIN [Concomitant]
     Indication: BLOOD CHOLESTEROL
     Dosage: 30 MIN BEFORE TAKING NIASPAN COATED
  5. ATENOLOL [Concomitant]
     Indication: HYPERTENSION
  6. ICAP [Concomitant]
     Indication: EYE DISORDER
  7. LUTEIN [Concomitant]
     Indication: EYE DISORDER
  8. CRESTOR [Concomitant]
     Indication: BLOOD CHOLESTEROL INCREASED
  9. FLUOXETINE [Concomitant]
     Indication: PRODUCT USED FOR UNKNOWN INDICATION
  10. DERMA-SMOOTHE/FS [Concomitant]
     Indication: PRODUCT USED FOR UNKNOWN INDICATION
  11. HUMIRA [Suspect]
     Indication: PSORIASIS
     Dates: start: 20120309, end: 20120309
  12. HUMIRA [Suspect]
     Dates: start: 20120316, end: 20120316
  13. HUMIRA [Suspect]
     Dates: start: 20120330
  14. FISH OIL [Concomitant]
     Indication: PRODUCT USED FOR UNKNOWN INDICATION
  15. VITAMIN D [Concomitant]
     Indication: PRODUCT USED FOR UNKNOWN INDICATION
  16. NIASPAN [Concomitant]
     Indication: PRODUCT USED FOR UNKNOWN INDICATION

REACTIONS (2)
  - PAIN [None]
  - ANAL FISSURE [None]
